FAERS Safety Report 17888815 (Version 6)
Quarter: 2022Q3

REPORT INFORMATION
  Report Type: Report from Study
  Country: US (occurrence: US)
  Receive Date: 20200612
  Receipt Date: 20220921
  Transmission Date: 20221027
  Serious: Yes (Other)
  Sender: FDA-Public Use
  Company Number: US-SHIRE-US202019276

PATIENT
  Age: 61 Year
  Sex: Female

DRUGS (4)
  1. HUMAN IMMUNOGLOBULIN G\HYALURONIDASE RECOMBINANT HUMAN [Suspect]
     Active Substance: HUMAN IMMUNOGLOBULIN G\HYALURONIDASE RECOMBINANT HUMAN
     Indication: Primary immunodeficiency syndrome
     Dosage: UNK, Q4WEEKS
     Route: 058
  2. GAMMAGARD [Suspect]
     Active Substance: HUMAN IMMUNOGLOBULIN G
     Indication: Primary immunodeficiency syndrome
     Dosage: UNK
     Route: 042
  3. CUVITRU [Suspect]
     Active Substance: HUMAN IMMUNOGLOBULIN G
     Indication: Primary immunodeficiency syndrome
     Dosage: 30 GRAM, Q2WEEKS
     Route: 065
  4. HUMAN IMMUNOGLOBULIN G [Suspect]
     Active Substance: HUMAN IMMUNOGLOBULIN G
     Indication: Product used for unknown indication
     Dosage: UNK
     Route: 042

REACTIONS (21)
  - Pulmonary fibrosis [Unknown]
  - Upper airway obstruction [Unknown]
  - Back disorder [Unknown]
  - Skin discolouration [Unknown]
  - Ill-defined disorder [Unknown]
  - Neck pain [Unknown]
  - Arthropathy [Unknown]
  - Discomfort [Unknown]
  - Abdominal distension [Unknown]
  - Abdominal tenderness [Unknown]
  - Headache [Unknown]
  - Bronchitis [Unknown]
  - Migraine [Unknown]
  - Arthralgia [Unknown]
  - Device use issue [Unknown]
  - Inappropriate schedule of product administration [Unknown]
  - Arthritis [Unknown]
  - Pruritus [Not Recovered/Not Resolved]
  - Bronchitis [Unknown]
  - Gastrooesophageal reflux disease [Unknown]
  - COVID-19 [Recovered/Resolved]

NARRATIVE: CASE EVENT DATE: 20200902
